FAERS Safety Report 17160706 (Version 2)
Quarter: 2019Q4

REPORT INFORMATION
  Report Type: Report from Study
  Country: US (occurrence: US)
  Receive Date: 20191216
  Receipt Date: 20191226
  Transmission Date: 20200122
  Serious: Yes (Hospitalization, Other)
  Sender: FDA-Public Use
  Company Number: US-ACTELION-A-NJ2019-195202

PATIENT
  Age: 12 Year
  Sex: Female
  Weight: 21.32 kg

DRUGS (22)
  1. DIGOXIN. [Concomitant]
     Active Substance: DIGOXIN
     Dosage: 125 MCG, QD
     Route: 048
  2. FUROSEMIDE. [Concomitant]
     Active Substance: FUROSEMIDE
     Dosage: 20 MG, BID
     Route: 048
  3. LASIX [Concomitant]
     Active Substance: FUROSEMIDE
     Dosage: 20 MG, BID
     Route: 048
  4. ALBUTEROL. [Concomitant]
     Active Substance: ALBUTEROL
     Dosage: 2.5 MG, Q 4 HOURS AS NEEDED
     Route: 055
  5. OXYGEN. [Concomitant]
     Active Substance: OXYGEN
     Dosage: 4 L, PER MIN
  6. ENALAPRIL [Concomitant]
     Active Substance: ENALAPRIL
     Dosage: 1.25 MG, BID
     Route: 048
  7. ATROVENT [Concomitant]
     Active Substance: IPRATROPIUM BROMIDE
     Dosage: 0.5 MG, QID
     Route: 055
  8. BECLOMETHASONE [Concomitant]
     Active Substance: BECLOMETHASONE
     Dosage: 40 MCG
     Route: 055
  9. ALDACTONE [Concomitant]
     Active Substance: SPIRONOLACTONE
     Dosage: 18 MG, QD
     Route: 048
  10. SILDENAFIL. [Concomitant]
     Active Substance: SILDENAFIL
     Indication: PULMONARY ARTERIAL HYPERTENSION
     Dosage: 2.5 MG/ML
     Route: 048
     Dates: start: 2010
  11. FERROUS SULFATE. [Concomitant]
     Active Substance: FERROUS SULFATE
     Dosage: 325 MG
     Route: 048
  12. TOBI [Concomitant]
     Active Substance: TOBRAMYCIN
     Dosage: ONE VIAL VIA NEB BID
     Route: 055
  13. TRACLEER [Suspect]
     Active Substance: BOSENTAN
     Indication: PULMONARY HYPERTENSION
     Dosage: 62.5 MG, BID
     Route: 048
  14. SILDENAFIL. [Concomitant]
     Active Substance: SILDENAFIL
     Dosage: 20 MG, QID
     Route: 048
  15. PULMOZYME [Concomitant]
     Active Substance: DORNASE ALFA
     Dosage: 2.5 MG, QD
     Route: 055
  16. ENALAPRIL [Concomitant]
     Active Substance: ENALAPRIL
     Dosage: 2.5 MG
     Route: 048
  17. SPIRONOLACTONE. [Concomitant]
     Active Substance: SPIRONOLACTONE
     Dosage: 18 MG, Q12HRS
     Route: 048
  18. OXYGEN. [Concomitant]
     Active Substance: OXYGEN
     Dosage: UNK, PRN
  19. TRACLEER [Suspect]
     Active Substance: BOSENTAN
     Dosage: 31.25 MG, BID
     Route: 048
     Dates: start: 2009
  20. ASPIRIN. [Concomitant]
     Active Substance: ASPIRIN
     Dosage: 81 MG, QD
     Route: 048
  21. RANITIDINE. [Concomitant]
     Active Substance: RANITIDINE
     Dosage: 24 MG, BID
     Route: 048
  22. CYPROHEPTADINE. [Concomitant]
     Active Substance: CYPROHEPTADINE
     Dosage: 2 MG/5 ML
     Route: 048

REACTIONS (53)
  - Pneumothorax [Unknown]
  - Pneumonia [Recovered/Resolved]
  - Fatigue [Recovered/Resolved]
  - Wheezing [Recovered/Resolved]
  - Clubbing [Unknown]
  - Lung transplant [Unknown]
  - Oxygen consumption increased [Unknown]
  - White blood cell count decreased [Unknown]
  - Respiratory syncytial virus infection [Recovered/Resolved]
  - Rhinovirus infection [Recovered/Resolved]
  - Non-cardiac chest pain [Unknown]
  - Blood bilirubin increased [Unknown]
  - Restrictive pulmonary disease [Unknown]
  - Lung consolidation [Recovered/Resolved]
  - Chest pain [Unknown]
  - Nasal congestion [Recovered/Resolved]
  - Dyspnoea [Recovered/Resolved]
  - Discomfort [Recovered/Resolved]
  - Cyanosis [Unknown]
  - Blood calcium decreased [Unknown]
  - Blood 25-hydroxycholecalciferol decreased [Unknown]
  - Pleural effusion [Unknown]
  - Enterovirus infection [Recovered/Resolved]
  - Productive cough [Recovered/Resolved]
  - Pyrexia [Recovered/Resolved]
  - Blood urea increased [Unknown]
  - Blood albumin decreased [Unknown]
  - Haemothorax [Unknown]
  - Tricuspid valve incompetence [Unknown]
  - Left ventricular hypertrophy [Unknown]
  - Respiratory distress [Recovered/Resolved]
  - Rhinorrhoea [Recovered/Resolved]
  - Polycythaemia [Unknown]
  - Tachypnoea [Recovered/Resolved]
  - Red blood cell count increased [Unknown]
  - Haemoglobin increased [Unknown]
  - Neutrophil count increased [Unknown]
  - Insulin-like growth factor decreased [Unknown]
  - Cardiac murmur [Unknown]
  - Exercise tolerance decreased [Unknown]
  - Sputum purulent [Recovered/Resolved]
  - Scoliosis [Unknown]
  - Hypoxia [Recovered/Resolved]
  - Blood glucose increased [Unknown]
  - Blood sodium decreased [Unknown]
  - Heart transplant [Unknown]
  - Right ventricular dysfunction [Unknown]
  - Right ventricular hypertrophy [Unknown]
  - Palpitations [Unknown]
  - Viral infection [Recovered/Resolved]
  - Breath sounds abnormal [Recovered/Resolved]
  - Brain natriuretic peptide increased [Unknown]
  - Dizziness [Unknown]

NARRATIVE: CASE EVENT DATE: 20190814
